FAERS Safety Report 4341734-7 (Version None)
Quarter: 2004Q2

REPORT INFORMATION
  Report Type: 
  Country: None (occurrence: None)
  Receive Date: 20040420
  Receipt Date: 19931213
  Transmission Date: 20050107
  Serious: Yes (Congenital Anomaly)
  Sender: FDA-Public Use
  Company Number: FR-MERCK-93126032

PATIENT
  Age: 0 Day
  Sex: Male

DRUGS (3)
  1. ALPIDEM [Concomitant]
     Route: 065
  2. FLUOXETINE [Concomitant]
     Route: 065
  3. ZOCOR [Suspect]
     Route: 048

REACTIONS (3)
  - HYPOSPADIAS [None]
  - MATERNAL DRUGS AFFECTING FOETUS [None]
  - NEONATAL DISORDER [None]
